FAERS Safety Report 14557557 (Version 9)
Quarter: 2018Q2

REPORT INFORMATION
  Report Type: Report from Study
  Country: IT (occurrence: IT)
  Receive Date: 20180221
  Receipt Date: 20180612
  Transmission Date: 20180711
  Serious: Yes (Other)
  Sender: FDA-Public Use
  Company Number: IT-PFIZER INC-2018062491

PATIENT
  Age: 19 Year
  Sex: Female

DRUGS (28)
  1. CYTARABINE. [Suspect]
     Active Substance: CYTARABINE
     Dosage: 2000 MG/M2 2XDAY, CYCLIC (Q12H) CYCLE 7, DAY 3,4
     Route: 042
  2. FILGRASTIM [Suspect]
     Active Substance: FILGRASTIM
     Dosage: 10 UG/KG, (CYCLE 7), 8 TO HARVEST/ANC GREATER THAN 1.0
  3. DEXAMETHASONE SODIUM PHOSPHATE. [Suspect]
     Active Substance: DEXAMETHASONE SODIUM PHOSPHATE
     Dosage: 5 MG/M2 2XDAY, CYCLIC; DAY 1-5 (CYCLE 2)
     Route: 048
  4. LENOGRASTIM [Suspect]
     Active Substance: LENOGRASTIM
     Dosage: 5 UG/KG DAILY, CYCLIC (CYCLE 3)
     Route: 058
  5. FILGRASTIM [Suspect]
     Active Substance: FILGRASTIM
     Indication: ACUTE LYMPHOCYTIC LEUKAEMIA
     Dosage: 5 UG/KG DAILY, CYCLIC, 5 TO ANC }1.0
     Route: 058
  6. CYCLOPHOSPHAMIDE. [Suspect]
     Active Substance: CYCLOPHOSPHAMIDE
     Indication: ACUTE LYMPHOCYTIC LEUKAEMIA
     Dosage: 300 MG/M2 DAILY, CYCLIC, DAY -3 TO-1
     Route: 042
  7. CYTARABINE. [Suspect]
     Active Substance: CYTARABINE
     Indication: ACUTE LYMPHOCYTIC LEUKAEMIA
     Dosage: 75 MG/M2 DAILY, CYCLIC (CYCLE 2 AND 6) DAY 2-5, 9-12
     Route: 042
  8. FILGRASTIM [Suspect]
     Active Substance: FILGRASTIM
     Dosage: 5 UG/KG DAILY, CYCLIC, ANC{0.5 TO }1.0 (CYCLE 2)
     Route: 058
  9. FILGRASTIM [Suspect]
     Active Substance: FILGRASTIM
     Dosage: 5 UG/KG DAILY, CYCLIC (CYCLE 3)
     Route: 058
  10. CYCLOPHOSPHAMIDE. [Suspect]
     Active Substance: CYCLOPHOSPHAMIDE
     Dosage: 1000 MG/M2 DAILY, CYCLIC (CYCLE 2)
     Route: 042
  11. LENOGRASTIM [Suspect]
     Active Substance: LENOGRASTIM
     Dosage: 5 UG/KG DAILY, CYCLIC, ANC{0.5 TO }1.0 (CYCLE 2)
     Route: 058
  12. LENOGRASTIM [Suspect]
     Active Substance: LENOGRASTIM
     Dosage: 10 UG/KG, DAILY, CYCLIC (CYCLE 7), 8 TO HARVEST/ANC GREATER THAN 1.0
  13. FOLINIC ACID [Suspect]
     Active Substance: LEUCOVORIN
     Indication: ACUTE LYMPHOCYTIC LEUKAEMIA
     Dosage: UNK
  14. VINCRISTINE SULFATE. [Suspect]
     Active Substance: VINCRISTINE SULFATE
     Indication: ACUTE LYMPHOCYTIC LEUKAEMIA
     Dosage: 1.4 MG/M2, CYCLIC (MAX 2 MG), INFUSION TIME:PUSH
     Route: 042
  15. DEXAMETHASONE SODIUM PHOSPHATE. [Suspect]
     Active Substance: DEXAMETHASONE SODIUM PHOSPHATE
     Dosage: 5 MG/M2 2XDAY, CYCLIC; DAY 1-5 (CYCLE 2)
     Route: 042
  16. THIOTEPA. [Suspect]
     Active Substance: THIOTEPA
     Indication: ACUTE LYMPHOCYTIC LEUKAEMIA
     Dosage: 5 MG/KG, CYCLIC DAY1-2
     Dates: start: 20150904
  17. BUSULFAN. [Suspect]
     Active Substance: BUSULFAN
     Indication: ACUTE LYMPHOCYTIC LEUKAEMIA
     Dosage: 9.6 MG/KG, UNK
     Route: 042
     Dates: start: 20150904
  18. FLUDARABINE [Suspect]
     Active Substance: FLUDARABINE PHOSPHATE
     Indication: ACUTE LYMPHOCYTIC LEUKAEMIA
     Dosage: 50 MG/M2, CYCLIC DAY 3-4-5
     Dates: start: 20150904
  19. BLINCYTO [Suspect]
     Active Substance: BLINATUMOMAB
     Indication: ACUTE LYMPHOCYTIC LEUKAEMIA
     Dosage: UNK
     Dates: start: 20161220
  20. INOTUZUMAB OZOGAMICIN [Concomitant]
     Active Substance: INOTUZUMAB OZOGAMICIN
     Dosage: UNK
  21. METHOTREXATE. [Suspect]
     Active Substance: METHOTREXATE
     Indication: ACUTE LYMPHOCYTIC LEUKAEMIA
     Dosage: 5000 MG/M2 DAILY, CYCLIC
     Route: 042
  22. PREDNISONE. [Suspect]
     Active Substance: PREDNISONE
     Indication: ACUTE LYMPHOCYTIC LEUKAEMIA
     Dosage: 20 MG/M2 2XDAY (Q12 H),  CYCLIC
     Route: 048
  23. BLINATUMOMAB [Suspect]
     Active Substance: BLINATUMOMAB
     Indication: ACUTE LYMPHOCYTIC LEUKAEMIA
     Dosage: 1 (UNSPECIFIED UNITS), ONLY ONE CYCLE
     Dates: start: 20161220
  24. IDARUBICIN HCL [Suspect]
     Active Substance: IDARUBICIN HYDROCHLORIDE
     Indication: ACUTE LYMPHOCYTIC LEUKAEMIA
     Dosage: 12 MG/M2/D, CYCLIC; DAY 1,2 (CYCLE1 AND 2)
     Route: 042
  25. LENOGRASTIM [Suspect]
     Active Substance: LENOGRASTIM
     Indication: ACUTE LYMPHOCYTIC LEUKAEMIA
     Dosage: 5 UG/KG DAILY, CYCLIC, 5 TO ANC } 1.0
     Route: 058
  26. CYTARABINE. [Suspect]
     Active Substance: CYTARABINE
     Dosage: 75 MG/M2 DAILY, CYCLIC (CYCLE 2 AND 6) DAY 2-5, 9-12
     Route: 058
  27. DEXAMETHASONE SODIUM PHOSPHATE. [Suspect]
     Active Substance: DEXAMETHASONE SODIUM PHOSPHATE
     Indication: ACUTE LYMPHOCYTIC LEUKAEMIA
     Dosage: 5 MG/M2 2XDAY, CYCLIC; DAY 1-5, 15-19
     Route: 042
  28. MERCAPTOPURINE. [Suspect]
     Active Substance: MERCAPTOPURINE
     Indication: ACUTE LYMPHOCYTIC LEUKAEMIA
     Dosage: 60 MG/M2 DAILY, CYCLIC, DAY 1-14
     Route: 048

REACTIONS (3)
  - Neurotoxicity [Recovered/Resolved]
  - Seizure [Recovered/Resolved]
  - Neoplasm recurrence [Unknown]
